FAERS Safety Report 8303120-4 (Version None)
Quarter: 2012Q2

REPORT INFORMATION
  Report Type: 
  Country: None (occurrence: None)
  Receive Date: 20120423
  Receipt Date: 20120410
  Transmission Date: 20120825
  Serious: Yes (Hospitalization, Other)
  Sender: FDA-Public Use
  Company Number: US-BIOGENIDEC-2012BI001215

PATIENT
  Age: 39 Year
  Sex: Female

DRUGS (8)
  1. TYSABRI [Suspect]
     Indication: MULTIPLE SCLEROSIS
     Route: 042
     Dates: start: 20111027
  2. METHADONE HCL [Concomitant]
     Indication: OSTEONECROSIS
     Dates: start: 20080301
  3. SOMA [Concomitant]
     Indication: MUSCLE SPASMS
  4. DILAUDID [Concomitant]
     Indication: OSTEONECROSIS
  5. LORTAB [Concomitant]
     Indication: BURSITIS
  6. MORPHINE SULFATE [Concomitant]
     Indication: OSTEONECROSIS
  7. MORPHINE [Concomitant]
     Indication: OSTEONECROSIS
     Dates: start: 20080301
  8. TIZANIDINE HCL [Concomitant]
     Indication: MUSCLE SPASMS

REACTIONS (9)
  - PROCEDURAL PAIN [None]
  - ARTHRALGIA [None]
  - POST PROCEDURAL SWELLING [None]
  - BALANCE DISORDER [None]
  - JOINT INJURY [None]
  - BONE MARROW OEDEMA [None]
  - OSTEONECROSIS [None]
  - INSOMNIA [None]
  - GAIT DISTURBANCE [None]
